FAERS Safety Report 8199342-6 (Version None)
Quarter: 2012Q1

REPORT INFORMATION
  Report Type: 
  Country: None (occurrence: None)
  Receive Date: 20120309
  Receipt Date: 20120228
  Transmission Date: 20120608
  Serious: No
  Sender: FDA-Public Use
  Company Number: US-FRI-1000015369

PATIENT
  Age: 63 Year
  Sex: Female

DRUGS (9)
  1. THYROID TAB [Suspect]
     Dosage: 30 MG
     Route: 048
     Dates: start: 20100814, end: 20100816
  2. THYROID TAB [Suspect]
     Dosage: 15 MG
     Route: 048
     Dates: start: 20100824, end: 20100826
  3. THYROID TAB [Suspect]
     Dosage: 75-90 MG
     Route: 048
  4. THYROID TAB [Suspect]
     Dosage: 15 MG
     Route: 048
     Dates: start: 20100817, end: 20100819
  5. THYROID TAB [Suspect]
     Dosage: 15 MG
     Route: 048
     Dates: start: 20100828, end: 20100831
  6. THYROID TAB [Suspect]
     Dosage: 15 MG
     Route: 048
     Dates: start: 20100813, end: 20100813
  7. THYROID TAB [Suspect]
     Indication: HYPOTHYROIDISM
     Dosage: 120 MG
     Route: 048
     Dates: start: 20100613, end: 20100727
  8. THYROID TAB [Suspect]
     Dosage: 30 MG
     Route: 048
     Dates: start: 20100820, end: 20100823
  9. THYROID TAB [Suspect]
     Dosage: 30 MG
     Route: 048
     Dates: start: 20100827, end: 20100827

REACTIONS (14)
  - WEIGHT DECREASED [None]
  - FEELING JITTERY [None]
  - MYALGIA [None]
  - HYPOTHYROIDISM [None]
  - DRUG INEFFECTIVE [None]
  - INSOMNIA [None]
  - ANXIETY [None]
  - HYPERTHYROIDISM [None]
  - SUICIDAL IDEATION [None]
  - HYPERHIDROSIS [None]
  - PANIC ATTACK [None]
  - COLD SWEAT [None]
  - DEPRESSION [None]
  - DECREASED APPETITE [None]
